FAERS Safety Report 18787567 (Version 3)
Quarter: 2021Q1

REPORT INFORMATION
  Report Type: Spontaneous
  Country: BR (occurrence: BR)
  Receive Date: 20210126
  Receipt Date: 20210205
  Transmission Date: 20210419
  Serious: Yes (Hospitalization, Other)
  Sender: FDA-Public Use
  Company Number: BR-PFIZER INC-2021056003

PATIENT
  Age: 23 Year
  Sex: Female
  Weight: 28 kg

DRUGS (6)
  1. MAGNESIUM [Concomitant]
     Active Substance: MAGNESIUM
     Dosage: UNK
  2. SYNTHROID [Concomitant]
     Active Substance: LEVOTHYROXINE SODIUM
     Dosage: UNK
  3. CALTRATE [Concomitant]
     Active Substance: CALCIUM CARBONATE
     Dosage: UNK
  4. SIGMATRIOL [Concomitant]
     Active Substance: CALCITRIOL
     Dosage: UNK
  5. URSACOL [Concomitant]
     Active Substance: URSODIOL
     Dosage: UNK
  6. SUTENT [Suspect]
     Active Substance: SUNITINIB MALATE
     Indication: NEUROENDOCRINE CARCINOMA
     Dosage: 50 MG, CYCLIC (SHE USES 28 DAYS AND TAKES A BREAK OF 14 DAYS)
     Dates: start: 202010

REACTIONS (9)
  - Genital haemorrhage [Unknown]
  - Anaemia [Recovered/Resolved]
  - Enteritis [Recovered/Resolved]
  - Diarrhoea [Recovered/Resolved]
  - Hair colour changes [Recovered/Resolved]
  - Abdominal pain [Recovered/Resolved]
  - Haemorrhagic ovarian cyst [Recovered/Resolved]
  - Asthenia [Recovered/Resolved]
  - Yellow skin [Recovered/Resolved]

NARRATIVE: CASE EVENT DATE: 202011
